FAERS Safety Report 10570741 (Version 1)
Quarter: 2014Q4

REPORT INFORMATION
  Report Type: Spontaneous
  Country: US (occurrence: None)
  Receive Date: 20141106
  Receipt Date: 20141106
  Transmission Date: 20150529
  Serious: Yes (Other)
  Sender: FDA-Public Use
  Company Number: None

PATIENT
  Age: 11 Year
  Sex: Male
  Weight: 40.5 kg

DRUGS (3)
  1. VYVANSE [Suspect]
     Active Substance: LISDEXAMFETAMINE DIMESYLATE
     Indication: ATTENTION DEFICIT/HYPERACTIVITY DISORDER
     Dosage: 1 PILL, QD, ORAL
     Route: 048
     Dates: start: 20141101, end: 20141101
  2. VYVANSE [Suspect]
     Active Substance: LISDEXAMFETAMINE DIMESYLATE
     Indication: IMPULSIVE BEHAVIOUR
     Dosage: 1 PILL, QD, ORAL
     Route: 048
     Dates: start: 20141101, end: 20141101
  3. INTUNIV [Concomitant]
     Active Substance: GUANFACINE HYDROCHLORIDE

REACTIONS (3)
  - Abdominal pain upper [None]
  - Dyspnoea [None]
  - Oral discomfort [None]

NARRATIVE: CASE EVENT DATE: 20141101
